FAERS Safety Report 17824556 (Version 1)
Quarter: 2020Q2

REPORT INFORMATION
  Report Type: Spontaneous
  Country: US (occurrence: US)
  Receive Date: 20200526
  Receipt Date: 20200526
  Transmission Date: 20200714
  Serious: Yes (Other)
  Sender: FDA-Public Use
  Company Number: US-SA-2020SA133251

PATIENT
  Sex: Female

DRUGS (1)
  1. DULCOLAX PINK [Suspect]
     Active Substance: BISACODYL

REACTIONS (7)
  - Loss of consciousness [Unknown]
  - Gait disturbance [Unknown]
  - Dizziness [Unknown]
  - Somnolence [Unknown]
  - Feeling cold [Unknown]
  - Abdominal pain upper [Unknown]
  - Hyperhidrosis [Unknown]
